FAERS Safety Report 4917141-2 (Version None)
Quarter: 2006Q1

REPORT INFORMATION
  Report Type: 
  Country: None (occurrence: None)
  Receive Date: 20060221
  Receipt Date: 20060209
  Transmission Date: 20060701
  Serious: Yes (Death, Hospitalization)
  Sender: FDA-Public Use
  Company Number: DE-AVENTIS-200611291GDDC

PATIENT
  Age: 65 Year
  Sex: Male

DRUGS (1)
  1. DOCETAXEL [Suspect]
     Indication: NON-SMALL CELL LUNG CANCER
     Route: 041
     Dates: start: 20050121, end: 20050121

REACTIONS (6)
  - ANGINA PECTORIS [None]
  - ARRHYTHMIA SUPRAVENTRICULAR [None]
  - CARDIAC DISORDER [None]
  - CHEST PAIN [None]
  - DIARRHOEA [None]
  - NEUTROPENIA [None]
